FAERS Safety Report 5930308-X (Version None)
Quarter: 2008Q4

REPORT INFORMATION
  Report Type: 
  Country: None (occurrence: None)
  Receive Date: 20081024
  Receipt Date: 20081020
  Transmission Date: 20090506
  Serious: Yes (Hospitalization)
  Sender: FDA-Public Use
  Company Number: US-MERCK-0808USA04648

PATIENT
  Age: 87 Year
  Sex: Female

DRUGS (6)
  1. FOSAMAX PLUS D [Suspect]
     Indication: OSTEOPOROSIS
     Route: 048
     Dates: start: 20010101
  2. ATENOLOL [Concomitant]
     Route: 065
  3. COZAAR [Concomitant]
     Route: 065
  4. VYTORIN [Concomitant]
     Route: 065
  5. LEVOTHROID [Concomitant]
     Route: 065
  6. ASPIRIN [Concomitant]
     Route: 065

REACTIONS (4)
  - FALL [None]
  - HIP FRACTURE [None]
  - LIMB INJURY [None]
  - PELVIC FRACTURE [None]
